FAERS Safety Report 4819949-0 (Version None)
Quarter: 2005Q4

REPORT INFORMATION
  Report Type: 
  Country: None (occurrence: None)
  Receive Date: 20051102
  Receipt Date: 20051021
  Transmission Date: 20060501
  Serious: Yes (Other)
  Sender: FDA-Public Use
  Company Number: 2005146522

PATIENT
  Age: 61 Year
  Sex: Female

DRUGS (3)
  1. GABAPENTIN [Suspect]
     Indication: BACK PAIN
     Dosage: 1800 MG (600 MG, 3 IN 1 D), ORAL
     Route: 048
     Dates: start: 20040601, end: 20040601
  2. DICLOFENAC SODIUM [Concomitant]
  3. CO-PROXAMOL (DEXTROPROPOXYPHE [Concomitant]

REACTIONS (1)
  - CYSTITIS INTERSTITIAL [None]
